FAERS Safety Report 19053449 (Version 6)
Quarter: 2021Q4

REPORT INFORMATION
  Report Type: Report from Study
  Country: CN (occurrence: None)
  Receive Date: 20210324
  Receipt Date: 20211220
  Transmission Date: 20220303
  Serious: Yes (Hospitalization)
  Sender: FDA-Public Use
  Company Number: CN-ROCHE-2709996

PATIENT
  Age: 60 Year
  Sex: Male
  Weight: 60.3 kg

DRUGS (4)
  1. ATEZOLIZUMAB [Suspect]
     Active Substance: ATEZOLIZUMAB
     Indication: Malignant melanoma
     Dosage: MOST RECENT DOSE PRIOR TO AESI ON 19/FEB/2021
     Route: 041
     Dates: start: 20201016, end: 20210310
  2. ATEZOLIZUMAB [Suspect]
     Active Substance: ATEZOLIZUMAB
     Route: 041
     Dates: start: 20210315
  3. BEVACIZUMAB [Suspect]
     Active Substance: BEVACIZUMAB
     Indication: Malignant melanoma
     Dosage: MOST RECENT DOSE PRIOR TO AE/SAE ON 19/FEB/2021WAS 450 MG
     Route: 041
     Dates: start: 20201016, end: 20210310
  4. BEVACIZUMAB [Suspect]
     Active Substance: BEVACIZUMAB
     Route: 041
     Dates: start: 20210315

REACTIONS (2)
  - Hypophysitis [Recovering/Resolving]
  - Post herpetic neuralgia [Recovered/Resolved]

NARRATIVE: CASE EVENT DATE: 20201020
